FAERS Safety Report 6182912-4 (Version None)
Quarter: 2009Q2

REPORT INFORMATION
  Report Type: 
  Country: None (occurrence: None)
  Receive Date: 20090507
  Receipt Date: 20090427
  Transmission Date: 20091009
  Serious: Yes (Disabling)
  Sender: FDA-Public Use
  Company Number: US-MERCK-0811USA03805

PATIENT
  Age: 63 Year
  Sex: Female

DRUGS (1)
  1. FOSAMAX [Suspect]
     Indication: OSTEOPOROSIS
     Route: 048
     Dates: start: 20001201, end: 20071001

REACTIONS (10)
  - ABASIA [None]
  - ANXIETY [None]
  - DENTAL CARIES [None]
  - DEPRESSION [None]
  - DIABETES MELLITUS [None]
  - JAW DISORDER [None]
  - MAGNESIUM DEFICIENCY [None]
  - OSTEONECROSIS [None]
  - TOOTH DISORDER [None]
  - TOOTH INFECTION [None]
